FAERS Safety Report 4281803-3 (Version None)
Quarter: 2004Q1

REPORT INFORMATION
  Report Type: 
  Country: None (occurrence: None)
  Receive Date: 20040129
  Receipt Date: 20040129
  Transmission Date: 20041129
  Serious: Yes (Other)
  Sender: FDA-Public Use
  Company Number: None

PATIENT
  Sex: Female
  Weight: 61.2356 kg

DRUGS (1)
  1. ZOLOFT [Suspect]
     Indication: ANXIETY
     Dosage: 150MD 1/DAY ORAL
     Route: 048
     Dates: start: 20020901, end: 20040128

REACTIONS (8)
  - AGITATION [None]
  - FATIGUE [None]
  - IMPAIRED WORK ABILITY [None]
  - INSOMNIA [None]
  - LOSS OF EMPLOYMENT [None]
  - NIGHT SWEATS [None]
  - NIGHTMARE [None]
  - TINNITUS [None]
